FAERS Safety Report 7176711-4 (Version None)
Quarter: 2010Q4

REPORT INFORMATION
  Report Type: 
  Country: None (occurrence: None)
  Receive Date: 20101220
  Receipt Date: 20101216
  Transmission Date: 20110411
  Serious: Yes (Other)
  Sender: FDA-Public Use
  Company Number: US-SHIRE-SPV1-2010-02188

PATIENT
  Sex: Male
  Weight: 39.909 kg

DRUGS (1)
  1. MAS (MIXED AMPHETAMINE SALTS) [Suspect]
     Indication: ATTENTION DEFICIT/HYPERACTIVITY DISORDER
     Dosage: 20 MG, 1X/DAY:QD
     Route: 048
     Dates: start: 20090101, end: 20090101

REACTIONS (3)
  - CRYING [None]
  - PSYCHOTIC BEHAVIOUR [None]
  - VIOLENCE-RELATED SYMPTOM [None]
